FAERS Safety Report 4516548-5 (Version None)
Quarter: 2004Q4

REPORT INFORMATION
  Report Type: 
  Country: None (occurrence: None)
  Receive Date: 20041029
  Receipt Date: 20040714
  Transmission Date: 20050328
  Serious: No
  Sender: FDA-Public Use
  Company Number: 2004-118492-NL

PATIENT
  Age: 19 Year
  Sex: Female
  Weight: 108.9 kg

DRUGS (2)
  1. NUVARING [Suspect]
     Indication: CONTRACEPTION
     Dosage: DF DAILY VAGINAL
     Route: 067
     Dates: start: 20020101
  2. ADVIL [Concomitant]

REACTIONS (2)
  - LYMPHADENOPATHY [None]
  - METRORRHAGIA [None]
